FAERS Safety Report 5958154-1 (Version None)
Quarter: 2008Q4

REPORT INFORMATION
  Report Type: 
  Country: None (occurrence: None)
  Receive Date: 20081119
  Receipt Date: 20081104
  Transmission Date: 20090506
  Serious: Yes (Hospitalization)
  Sender: FDA-Public Use
  Company Number: US-GENENTECH-271614

PATIENT
  Sex: Female

DRUGS (7)
  1. BLINDED BEVACIZUMAB [Suspect]
     Indication: BREAST CANCER
     Dosage: UNK
     Route: 042
     Dates: start: 20080812
  2. CYCLOPHOSPHAMIDE [Suspect]
     Indication: BREAST CANCER
     Dosage: UNK
     Route: 042
     Dates: start: 20080812
  3. DOXORUBICIN HCL [Suspect]
     Indication: BREAST CANCER
     Dosage: UNK
     Route: 042
     Dates: start: 20080812
  4. PACLITAXEL [Suspect]
     Indication: BREAST CANCER
     Dosage: UNK
     Route: 042
     Dates: start: 20080812
  5. DOXORUBICIN HCL [Suspect]
     Indication: BREAST CANCER
     Dosage: 60 MG/M2, Q14D
     Route: 042
     Dates: start: 20080812
  6. CYCLOPHOSPHAMIDE [Suspect]
     Indication: BREAST CANCER
     Dosage: 600 MG/M2, Q14D
     Route: 042
     Dates: start: 20080812
  7. NEULASTA [Suspect]
     Indication: BREAST CANCER
     Dosage: 6 MG, Q14D
     Route: 058
     Dates: start: 20080813

REACTIONS (2)
  - CELLULITIS [None]
  - HERPES ZOSTER [None]
